FAERS Safety Report 14605040 (Version 1)
Quarter: 2018Q1

REPORT INFORMATION
  Report Type: Spontaneous
  Country: US (occurrence: US)
  Receive Date: 20180306
  Receipt Date: 20180306
  Transmission Date: 20180509
  Serious: No
  Sender: FDA-Public Use
  Company Number: None

PATIENT
  Sex: Male

DRUGS (1)
  1. ODOMZO [Suspect]
     Active Substance: SONIDEGIB
     Indication: BASAL CELL CARCINOMA
     Route: 048
     Dates: start: 201712

REACTIONS (7)
  - Weight decreased [None]
  - Asthenia [None]
  - Decreased appetite [None]
  - Dizziness [None]
  - Dyspnoea [None]
  - Ventricular extrasystoles [None]
  - Heart rate irregular [None]
